FAERS Safety Report 5015857-3 (Version None)
Quarter: 2006Q2

REPORT INFORMATION
  Report Type: 
  Country: None (occurrence: None)
  Receive Date: 20060601
  Receipt Date: 20060321
  Transmission Date: 20061013
  Serious: Yes (Death, Life-Threatening, Hospitalization)
  Sender: FDA-Public Use
  Company Number: TR-BRISTOL-MYERS SQUIBB COMPANY-13324231

PATIENT
  Age: 59 Year
  Sex: Male

DRUGS (13)
  1. ERBITUX [Suspect]
     Indication: NON-SMALL CELL LUNG CANCER
     Route: 041
     Dates: start: 20050929
  2. CISPLATIN [Suspect]
     Indication: NON-SMALL CELL LUNG CANCER
     Route: 042
     Dates: start: 20050929
  3. VINORELBINE [Suspect]
     Indication: NON-SMALL CELL LUNG CANCER
     Route: 042
     Dates: start: 20050929
  4. ZOLEDRONIC ACID [Suspect]
     Indication: METASTASES TO BONE
     Route: 042
     Dates: start: 20051010, end: 20051010
  5. MEGESTROL ACETATE [Concomitant]
  6. AMLODIPINE [Concomitant]
  7. FENTANYL [Concomitant]
  8. NYSTATIN [Concomitant]
  9. DEXAMETHASONE TAB [Concomitant]
  10. GRANISETRON  HCL [Concomitant]
  11. RANITIDINE HCL [Concomitant]
  12. FUROSEMIDE [Concomitant]
  13. LACTULOSE [Concomitant]

REACTIONS (3)
  - HYPOCALCAEMIA [None]
  - HYPOMAGNESAEMIA [None]
  - NEUTROPENIC SEPSIS [None]
